FAERS Safety Report 6929535-4 (Version None)
Quarter: 2010Q3

REPORT INFORMATION
  Report Type: 
  Country: None (occurrence: None)
  Receive Date: 20100818
  Receipt Date: 20100721
  Transmission Date: 20110219
  Serious: Yes (Hospitalization, Other)
  Sender: FDA-Public Use
  Company Number: DE-BAYER-201014970GPV

PATIENT
  Age: 72 Year
  Sex: Male
  Weight: 83 kg

DRUGS (5)
  1. NEXAVAR [Suspect]
     Indication: THYROID CANCER
     Dosage: TOTAL DAILY DOSE: 400 MG  UNIT DOSE: 200 MG
     Route: 048
     Dates: start: 20090601, end: 20100112
  2. LEVOTHYROXINE SODIUM [Concomitant]
  3. TRAMADOL [Concomitant]
  4. DOSS [Concomitant]
  5. CALCILAC [Concomitant]

REACTIONS (12)
  - ATRIAL FIBRILLATION [None]
  - DIARRHOEA [None]
  - ESCHERICHIA URINARY TRACT INFECTION [None]
  - HYPERPARATHYROIDISM SECONDARY [None]
  - HYPERTENSION [None]
  - HYPOCALCAEMIA [None]
  - HYPOKALAEMIA [None]
  - PLEURAL EFFUSION [None]
  - TACHYARRHYTHMIA [None]
  - TACHYCARDIA [None]
  - URINARY TRACT INFECTION PSEUDOMONAL [None]
  - VITAMIN D DEFICIENCY [None]
